FAERS Safety Report 8599344 (Version 2)
Quarter: 2012Q4

REPORT INFORMATION
  Report Type: 
  Country: CA (occurrence: CA)
  Receive Date: 20120605
  Receipt Date: 20120928
  Transmission Date: 20130627
  Serious: Yes (Other)
  Sender: FDA-Public Use
  Company Number: CA-GLAXOSMITHKLINE-A0962799A

PATIENT
  Age: 63 Year
  Sex: Female
  Weight: 52.3 kg

DRUGS (8)
  1. ADVAIR [Suspect]
     Indication: CHRONIC OBSTRUCTIVE PULMONARY DISEASE
     Dosage: 1PUFF Per day
     Route: 055
     Dates: start: 2009
  2. SPIRIVA [Concomitant]
     Route: 065
  3. VENTOLIN [Concomitant]
     Route: 065
  4. FOSAMAX [Concomitant]
     Route: 065
     Dates: start: 2012
  5. ATROVENT [Concomitant]
     Route: 065
     Dates: start: 2012
  6. ROFLUMILAST [Concomitant]
     Route: 065
     Dates: start: 2012
  7. PREDNISONE [Concomitant]
     Route: 065
     Dates: start: 201205
  8. ANTIBIOTIC [Concomitant]
     Route: 065

REACTIONS (10)
  - Osteoporosis [Unknown]
  - Multiple fractures [Recovering/Resolving]
  - Arthralgia [Recovering/Resolving]
  - Back pain [Recovering/Resolving]
  - Malaise [Recovering/Resolving]
  - Productive cough [Not Recovered/Not Resolved]
  - Sputum discoloured [Not Recovered/Not Resolved]
  - Nasopharyngitis [Not Recovered/Not Resolved]
  - Chills [Not Recovered/Not Resolved]
  - Cough [Not Recovered/Not Resolved]
